FAERS Safety Report 11542517 (Version 1)
Quarter: 2015Q3

REPORT INFORMATION
  Report Type: Spontaneous
  Country: US (occurrence: US)
  Receive Date: 20150903
  Receipt Date: 20150903
  Transmission Date: 20151125
  Serious: No
  Sender: FDA-Public Use
  Company Number: US-ELI_LILLY_AND_COMPANY-US201204009312

PATIENT
  Sex: Female

DRUGS (2)
  1. INSULIN GLARGINE [Concomitant]
     Active Substance: INSULIN GLARGINE
     Dosage: UNK, EACH EVENING
  2. HUMALOG [Suspect]
     Active Substance: INSULIN LISPRO
     Indication: TYPE 2 DIABETES MELLITUS
     Dosage: UNK, OTHER

REACTIONS (5)
  - Blood glucose increased [Unknown]
  - Spinal disorder [Not Recovered/Not Resolved]
  - Cardiac disorder [Unknown]
  - Crohn^s disease [Unknown]
  - Hypertension [Not Recovered/Not Resolved]
